FAERS Safety Report 4687517-X (Version None)
Quarter: 2005Q2

REPORT INFORMATION
  Report Type: 
  Country: None (occurrence: None)
  Receive Date: 20050608
  Receipt Date: 20050608
  Transmission Date: 20051028
  Serious: Yes (Life-Threatening)
  Sender: FDA-Public Use
  Company Number: None

PATIENT
  Sex: Male
  Weight: 115 kg

DRUGS (5)
  1. EPTIFIBATIDE  75 MG/ 100 ML [Suspect]
     Indication: STENT PLACEMENT
     Dosage: 1 MCG/KG/MIN    CONTINUOUS    INTRAVENOU
     Route: 042
     Dates: start: 20050510, end: 20050512
  2. EPTIFIBATIDE    75 MG/100 ML [Suspect]
     Indication: CARDIAC ARREST
     Dosage: 2 MCG/KG/MIN    CONTINOUOU   INTRAVENOU
     Route: 042
     Dates: start: 20050514, end: 20050516
  3. TOBRAMYCIN [Concomitant]
  4. ZOSYN [Concomitant]
  5. HEPARIN [Concomitant]

REACTIONS (4)
  - CARDIAC ARREST [None]
  - INCORRECT DOSE ADMINISTERED [None]
  - PLASMAPHERESIS [None]
  - THROMBOCYTOPENIA [None]
